FAERS Safety Report 6502578-0 (Version None)
Quarter: 2009Q4

REPORT INFORMATION
  Report Type: 
  Country: None (occurrence: None)
  Receive Date: 20091127
  Receipt Date: 20090904
  Transmission Date: 20100525
  Serious: No
  Sender: FDA-Public Use
  Company Number: 001653

PATIENT
  Sex: Female

DRUGS (4)
  1. LACOSAMIDE [Suspect]
     Indication: DIABETIC NEUROPATHY
     Dosage: (50 MG BID ORAL) (100 MG BID ORAL), ( 50 MG BID ORAL)
     Route: 048
     Dates: start: 20090829, end: 20090830
  2. LACOSAMIDE [Suspect]
     Indication: DIABETIC NEUROPATHY
     Dosage: (50 MG BID ORAL) (100 MG BID ORAL), ( 50 MG BID ORAL)
     Route: 048
     Dates: start: 20090822, end: 20090928
  3. LACOSAMIDE [Suspect]
     Indication: DIABETIC NEUROPATHY
     Dosage: (50 MG BID ORAL) (100 MG BID ORAL), ( 50 MG BID ORAL)
     Route: 048
     Dates: start: 20090831
  4. PREGABALIN [Concomitant]

REACTIONS (7)
  - DIZZINESS [None]
  - FEELING ABNORMAL [None]
  - FLUSHING [None]
  - MUSCLE STRAIN [None]
  - MUSCLE TWITCHING [None]
  - OFF LABEL USE [None]
  - SOMNOLENCE [None]
